FAERS Safety Report 10262287 (Version 1)
Quarter: 2014Q2

REPORT INFORMATION
  Report Type: Spontaneous
  Country: US (occurrence: US)
  Receive Date: 20140626
  Receipt Date: 20140626
  Transmission Date: 20141212
  Serious: Yes (Life-Threatening, Hospitalization, Other)
  Sender: FDA-Public Use
  Company Number: US-ASTRAZENECA-2014SE46602

PATIENT
  Age: 53 Year
  Sex: Male

DRUGS (2)
  1. BRILINTA [Suspect]
     Indication: STENT PLACEMENT
     Route: 048
  2. BRILINTA [Suspect]
     Indication: STENT PLACEMENT
     Route: 048
     Dates: start: 201406

REACTIONS (4)
  - Thrombosis [Unknown]
  - Myocardial infarction [Unknown]
  - Adverse event [Unknown]
  - Intentional product misuse [Unknown]
